FAERS Safety Report 6467831-8 (Version None)
Quarter: 2009Q4

REPORT INFORMATION
  Report Type: 
  Country: None (occurrence: None)
  Receive Date: 20091127
  Receipt Date: 20091113
  Transmission Date: 20100525
  Serious: Yes (Hospitalization)
  Sender: FDA-Public Use
  Company Number: 1000010275

PATIENT
  Age: 69 Year
  Sex: Female

DRUGS (3)
  1. MEMANTINE HCL [Suspect]
     Dosage: ORAL
     Route: 048
     Dates: end: 20081214
  2. RISPERDAL [Suspect]
     Dosage: ORAL
     Route: 048
     Dates: end: 20081214
  3. AMLOR [Suspect]
     Indication: HYPERTENSION
     Dosage: ORAL
     Route: 048
     Dates: end: 20081214

REACTIONS (7)
  - APHASIA [None]
  - BLOOD UREA INCREASED [None]
  - C-REACTIVE PROTEIN INCREASED [None]
  - DISORIENTATION [None]
  - EXTRAPYRAMIDAL DISORDER [None]
  - GENERAL PHYSICAL HEALTH DETERIORATION [None]
  - HYPOKALAEMIA [None]
